FAERS Safety Report 8833425 (Version 1)
Quarter: 2012Q4

REPORT INFORMATION
  Report Type: 
  Country: US (occurrence: US)
  Receive Date: 20121010
  Receipt Date: 20121010
  Transmission Date: 20130627
  Serious: No
  Sender: FDA-Public Use
  Company Number: US-VERTEX PHARMACEUTICAL INC.-2012-022029

PATIENT
  Age: 45 Year
  Sex: Female

DRUGS (3)
  1. VX-950 [Suspect]
     Indication: HEPATITIS C
     Dosage: 750 mg, tid
     Route: 048
     Dates: start: 20120921
  2. PEGASYS [Concomitant]
     Indication: HEPATITIS C
     Dosage: 0.5 ml, weekly
     Route: 058
     Dates: start: 20120921
  3. RIBASPHERE [Concomitant]
     Indication: HEPATITIS C
     Dosage: 600 mg, bid
     Route: 048
     Dates: start: 20120921

REACTIONS (3)
  - Arthralgia [Unknown]
  - Myalgia [Unknown]
  - Pain [Unknown]
